FAERS Safety Report 24845304 (Version 1)
Quarter: 2025Q1

REPORT INFORMATION
  Report Type: Spontaneous
  Country: US (occurrence: None)
  Receive Date: 20250114
  Receipt Date: 20250114
  Transmission Date: 20250408
  Serious: Yes (Disabling)
  Sender: FDA-CTU
  Company Number: None

PATIENT
  Age: 37 Year
  Sex: Female
  Weight: 57.6 kg

DRUGS (1)
  1. HYLENEX RECOMBINANT [Suspect]
     Active Substance: HYALURONIDASE (HUMAN RECOMBINANT)
     Indication: Skin cosmetic procedure
     Dates: start: 20250109, end: 20250109

REACTIONS (8)
  - Maternal exposure during breast feeding [None]
  - Muscular weakness [None]
  - Skin striae [None]
  - Dermatochalasis [None]
  - Headache [None]
  - Gingival recession [None]
  - Connective tissue disorder [None]
  - Facial wasting [None]

NARRATIVE: CASE EVENT DATE: 20250109
